FAERS Safety Report 5486914-2 (Version None)
Quarter: 2007Q4

REPORT INFORMATION
  Report Type: 
  Country: None (occurrence: None)
  Receive Date: 20071016
  Receipt Date: 20071008
  Transmission Date: 20080405
  Serious: Yes (Hospitalization)
  Sender: FDA-Public Use
  Company Number: US-ROCHE-505684

PATIENT
  Age: 17 Year
  Sex: Female

DRUGS (4)
  1. ACCUTANE [Suspect]
     Dosage: DOSE: 40 MG IN MORNING; 20 MG AT BEDTIME.
     Route: 048
     Dates: start: 20070208
  2. CLARAVIS [Suspect]
     Dosage: THE PATIENT WAS DISPENSED ISOTRETINOIN ON 14 APRIL 2007. DOSE: 40 MG IN MORNING; 20 MG AT BEDTIME.
     Route: 048
     Dates: start: 20070414, end: 20070507
  3. CLARAVIS [Suspect]
     Route: 048
     Dates: start: 20070508, end: 20070530
  4. CONTRACEPTIVE [Concomitant]
     Route: 048

REACTIONS (2)
  - ANGER [None]
  - SELF-INJURIOUS IDEATION [None]
